FAERS Safety Report 24965891 (Version 1)
Quarter: 2025Q1

REPORT INFORMATION
  Report Type: Spontaneous
  Country: US (occurrence: None)
  Receive Date: 20250212
  Receipt Date: 20250212
  Transmission Date: 20250409
  Serious: Yes (Life-Threatening, Hospitalization)
  Sender: FDA-CTU
  Company Number: None

PATIENT
  Age: 79 Year
  Sex: Male

DRUGS (1)
  1. APIXABAN [Suspect]
     Active Substance: APIXABAN
     Indication: Atrial fibrillation
     Dosage: FREQUENCY : TWICE A DAY;?
     Route: 048
     Dates: start: 20191007

REACTIONS (5)
  - Anaemia [None]
  - Gastrointestinal haemorrhage [None]
  - Varices oesophageal [None]
  - Hepatic cirrhosis [None]
  - Portal hypertension [None]

NARRATIVE: CASE EVENT DATE: 20241225
